FAERS Safety Report 16216882 (Version 2)
Quarter: 2019Q2

REPORT INFORMATION
  Report Type: Spontaneous
  Country: US (occurrence: US)
  Receive Date: 20190419
  Receipt Date: 20190422
  Transmission Date: 20190711
  Serious: No
  Sender: FDA-Public Use
  Company Number: US-GLAXOSMITHKLINE-US2019066748

PATIENT
  Age: 76 Year
  Sex: Female

DRUGS (1)
  1. TRANSDERM SCOP [Suspect]
     Active Substance: SCOPOLAMINE
     Indication: NAUSEA
     Dosage: UNK
     Dates: start: 201903

REACTIONS (12)
  - Confusional state [Unknown]
  - Restlessness [Unknown]
  - Psychotic disorder [Unknown]
  - Disorientation [Unknown]
  - Amnesia [Unknown]
  - Vomiting [Unknown]
  - Dizziness [Unknown]
  - Hallucination [Unknown]
  - Adverse drug reaction [Unknown]
  - Inappropriate schedule of product administration [Unknown]
  - Speech disorder [Unknown]
  - Incorrect product administration duration [Unknown]

NARRATIVE: CASE EVENT DATE: 201903
